FAERS Safety Report 8014425-9 (Version None)
Quarter: 2011Q4

REPORT INFORMATION
  Report Type: 
  Country: None (occurrence: None)
  Receive Date: 20111229
  Receipt Date: 20111222
  Transmission Date: 20120403
  Serious: Yes (Other)
  Sender: FDA-Public Use
  Company Number: PHHY2011GB111931

PATIENT
  Age: 77 Year
  Sex: Male

DRUGS (9)
  1. INSULIN [Concomitant]
  2. FUROSEMIDE [Concomitant]
     Dosage: 20 MG, BID
  3. METFORMIN HCL [Concomitant]
     Dosage: 1 G, BID
  4. CARBIDOPA AND LEVODOPA [Suspect]
     Indication: PARKINSON'S DISEASE
     Dosage: 125 MG, QID
     Route: 048
     Dates: start: 20110606
  5. CITALOPRAM [Concomitant]
     Dosage: 20 MG, UNK
  6. PERINDOPRIL [Concomitant]
     Dosage: 2 MG, UNK
  7. AMLODIPINE [Concomitant]
     Dosage: 5 MG, UNK
  8. TAMSULOSIN HCL [Concomitant]
     Dosage: 400 UG, UNK
  9. TEMAZEPAM [Concomitant]
     Dosage: 20 MG, UNK

REACTIONS (2)
  - COMPULSIVE SEXUAL BEHAVIOUR [None]
  - IMPULSE-CONTROL DISORDER [None]
